FAERS Safety Report 15901751 (Version 7)
Quarter: 2019Q2

REPORT INFORMATION
  Report Type: Spontaneous
  Country: US (occurrence: US)
  Receive Date: 20190201
  Receipt Date: 20190614
  Transmission Date: 20190711
  Serious: Yes (Hospitalization)
  Sender: FDA-Public Use
  Company Number: US-ACTELION-A-NJ2019-185686

PATIENT
  Age: 51 Year
  Sex: Female
  Weight: 100.23 kg

DRUGS (4)
  1. VELETRI [Suspect]
     Active Substance: EPOPROSTENOL
     Indication: PULMONARY HYPERTENSION
     Dosage: 15 NG/KG, PER MIN
     Route: 042
  2. OPSUMIT [Suspect]
     Active Substance: MACITENTAN
     Indication: PULMONARY HYPERTENSION
     Dosage: 10 MG, QD
     Route: 048
  3. VELETRI [Suspect]
     Active Substance: EPOPROSTENOL
     Dosage: 13 NG/KG, PER MIN
     Route: 042
  4. ADCIRCA [Concomitant]
     Active Substance: TADALAFIL

REACTIONS (27)
  - Vascular device infection [Recovered/Resolved]
  - Splenomegaly [Unknown]
  - Arthralgia [Unknown]
  - Nasal congestion [Unknown]
  - Anxiety [Unknown]
  - Product dose omission [Unknown]
  - Nausea [Unknown]
  - Insomnia [Unknown]
  - Blood iron decreased [Unknown]
  - Depression [Unknown]
  - Renal failure [Not Recovered/Not Resolved]
  - Diarrhoea [Unknown]
  - Feeling cold [Unknown]
  - Oedema [Unknown]
  - Peripheral swelling [Unknown]
  - Right ventricular failure [Unknown]
  - Oedema peripheral [Unknown]
  - Nasal dryness [Unknown]
  - Glaucoma [Unknown]
  - Chest pain [Unknown]
  - Sputum discoloured [Unknown]
  - Haemoglobin decreased [Unknown]
  - Sleep apnoea syndrome [Unknown]
  - Hepatomegaly [Unknown]
  - Wrong dose [Unknown]
  - Weight increased [Unknown]
  - Cardiac output increased [Unknown]

NARRATIVE: CASE EVENT DATE: 20190313
